FAERS Safety Report 7527107-4 (Version None)
Quarter: 2011Q2

REPORT INFORMATION
  Report Type: 
  Country: None (occurrence: None)
  Receive Date: 20110607
  Receipt Date: 20110524
  Transmission Date: 20111010
  Serious: No
  Sender: FDA-Public Use
  Company Number: ES-MYLANLABS-2011S1011005

PATIENT
  Age: 30 Year
  Sex: Female

DRUGS (5)
  1. ROPIVACAINE HYDROCHLORIDE [Suspect]
     Dosage: PERFUSION OF ROPIVACAINE 0.2% + FENTANYL 1 MCG/ML AT 8 ML/H
     Route: 008
  2. ROPIVACAINE HYDROCHLORIDE [Suspect]
     Dosage: 10ML OF 0.75% ROPIVACAINE
     Route: 008
  3. FENTANYL [Suspect]
     Dosage: PERFUSION OF ROPIVACAINE 0.2% + FENTANYL 1 MCG/ML AT 8 ML/H
     Route: 008
  4. ROPIVACAINE HYDROCHLORIDE [Suspect]
     Indication: ANAESTHESIA
     Dosage: 0.2% ROPIVACAINE 9ML
     Route: 008
  5. FENTANYL [Suspect]
     Indication: ANAESTHESIA
     Dosage: 50 MICROG FENTANYL
     Route: 008

REACTIONS (3)
  - NERVE BLOCK [None]
  - HORNER'S SYNDROME [None]
  - DRUG EXPOSURE DURING PREGNANCY [None]
